FAERS Safety Report 21506921 (Version 2)
Quarter: 2022Q4

REPORT INFORMATION
  Report Type: Report from Study
  Country: US (occurrence: US)
  Receive Date: 20221026
  Receipt Date: 20221220
  Transmission Date: 20230113
  Serious: Yes (Other)
  Sender: FDA-Public Use
  Company Number: US-ABBVIE-4173148

PATIENT
  Sex: Female

DRUGS (5)
  1. HUMIRA [Suspect]
     Active Substance: ADALIMUMAB
     Indication: Psoriatic arthropathy
     Dosage: CITRATE FREE
     Route: 058
  2. HUMIRA [Suspect]
     Active Substance: ADALIMUMAB
     Indication: Psoriasis
     Dosage: CITRATE FREE
     Route: 058
  3. PFIZER-BIONTECH COVID-19 VACCINE [Concomitant]
     Active Substance: TOZINAMERAN
     Indication: COVID-19 immunisation
     Route: 030
  4. PFIZER-BIONTECH COVID-19 VACCINE [Concomitant]
     Active Substance: TOZINAMERAN
     Indication: COVID-19 immunisation
     Dosage: BOOSTER DOSE
     Route: 030
  5. ASPIRIN [Concomitant]
     Active Substance: ASPIRIN
     Indication: Product used for unknown indication

REACTIONS (19)
  - Presyncope [Recovered/Resolved]
  - Weight gain poor [Unknown]
  - Loss of consciousness [Recovered/Resolved]
  - Extrasystoles [Not Recovered/Not Resolved]
  - Skin lesion [Recovering/Resolving]
  - Decreased appetite [Not Recovered/Not Resolved]
  - Fall [Recovered/Resolved]
  - Hyperventilation [Recovered/Resolved]
  - Device issue [Not Recovered/Not Resolved]
  - Skin haemorrhage [Recovering/Resolving]
  - Swelling [Unknown]
  - Loss of consciousness [Unknown]
  - Migraine [Unknown]
  - Nausea [Unknown]
  - Cold sweat [Recovered/Resolved]
  - Urinary incontinence [Recovered/Resolved]
  - Contusion [Unknown]
  - Depression [Unknown]
  - Blood pressure abnormal [Unknown]

NARRATIVE: CASE EVENT DATE: 20220101
